FAERS Safety Report 20109625 (Version 2)
Quarter: 2021Q4

REPORT INFORMATION
  Report Type: Spontaneous
  Country: JP (occurrence: JP)
  Receive Date: 20211124
  Receipt Date: 20211210
  Transmission Date: 20220304
  Serious: Yes (Death, Life-Threatening, Hospitalization, Other)
  Sender: FDA-Public Use
  Company Number: JP-PFIZER INC-202101579830

PATIENT
  Age: 51 Year
  Sex: Female
  Weight: 45.2 kg

DRUGS (4)
  1. METHOTREXATE [Suspect]
     Active Substance: METHOTREXATE
     Indication: Benign hydatidiform mole
     Dosage: 20 MG, DAILY
     Route: 030
     Dates: start: 20211025, end: 20211029
  2. METHIMAZOLE [Suspect]
     Active Substance: METHIMAZOLE
     Dosage: UNK
     Dates: end: 20211004
  3. SODIUM FERROUS CITRATE [Concomitant]
     Active Substance: SODIUM FERROUS CITRATE
     Indication: Iron deficiency anaemia
     Dosage: 200 MG, DAILY
     Route: 048
     Dates: start: 20161016, end: 20211101
  4. MAGNESIUM OXIDE [Concomitant]
     Active Substance: MAGNESIUM OXIDE
     Indication: Constipation
     Dosage: 6 TABLETS, DAILY
     Route: 048
     Dates: start: 20211014, end: 20211101

REACTIONS (11)
  - Myelosuppression [Fatal]
  - Rash erythematous [Fatal]
  - Stomatitis [Fatal]
  - Multiple organ dysfunction syndrome [Fatal]
  - Shock [Unknown]
  - Pancytopenia [Unknown]
  - White blood cell count decreased [Unknown]
  - Platelet count decreased [Unknown]
  - Anuria [Unknown]
  - Blood pressure decreased [Unknown]
  - Diarrhoea [Unknown]

NARRATIVE: CASE EVENT DATE: 20211030
